FAERS Safety Report 10442744 (Version 1)
Quarter: 2014Q3

REPORT INFORMATION
  Report Type: Spontaneous
  Country: GB (occurrence: None)
  Receive Date: 20140908
  Receipt Date: 20140908
  Transmission Date: 20150326
  Serious: Yes (Other)
  Sender: FDA-Public Use
  Company Number: NSR_01622_2014

PATIENT
  Age: 50 Year
  Sex: Female

DRUGS (6)
  1. VANCOMYCIN [Concomitant]
     Active Substance: VANCOMYCIN
  2. CHEMOTHERAPY [Concomitant]
     Active Substance: UNSPECIFIED INGREDIENT
  3. MEROPENEM. [Concomitant]
     Active Substance: MEROPENEM
  4. AZTREONAM. [Concomitant]
     Active Substance: AZTREONAM
  5. ALLOPURINOL (ALLOPURINOL) [Suspect]
     Active Substance: ALLOPURINOL
     Indication: NEUTROPENIC SEPSIS
     Dosage: DF (1 WEEK 3 DAYS UNTIL NOT CONTINUING)
  6. CLARITHROMYCIN. [Concomitant]
     Active Substance: CLARITHROMYCIN

REACTIONS (1)
  - Acute generalised exanthematous pustulosis [None]
